FAERS Safety Report 17193735 (Version 1)
Quarter: 2019Q4

REPORT INFORMATION
  Report Type: Report from Study
  Country: CA (occurrence: CA)
  Receive Date: 20191223
  Receipt Date: 20191223
  Transmission Date: 20200122
  Serious: Yes (Other)
  Sender: FDA-Public Use
  Company Number: CA-JNJFOC-20191228146

PATIENT
  Sex: Male
  Weight: 24 kg

DRUGS (1)
  1. REMICADE [Suspect]
     Active Substance: INFLIXIMAB
     Indication: COLITIS ULCERATIVE
     Dosage: 37TH INFUSION WAS ADMINISTERED ON 14-DEC-2019 WITH A DOSE OF 300 MG.
     Route: 042
     Dates: start: 20171101

REACTIONS (1)
  - Colitis ulcerative [Unknown]
